FAERS Safety Report 25406168 (Version 3)
Quarter: 2025Q4

REPORT INFORMATION
  Report Type: Report from Study
  Country: US (occurrence: US)
  Receive Date: 20250606
  Receipt Date: 20251003
  Transmission Date: 20260118
  Serious: Yes (Other)
  Sender: ROCHE
  Company Number: US-ROCHE-10000296692

PATIENT
  Age: 68 Year
  Sex: Female

DRUGS (1)
  1. ITOVEBI [Suspect]
     Active Substance: INAVOLISIB
     Indication: Breast cancer female
     Dosage: TAKE 2 TABLET(S) BY MOUTH (6MG) DAILY WITH OR WITHOUT FOOD
     Route: 048

REACTIONS (3)
  - Breast cancer metastatic [Unknown]
  - Incorrect dose administered [Unknown]
  - Neoplasm [Unknown]
